FAERS Safety Report 7304235-X (Version None)
Quarter: 2011Q1

REPORT INFORMATION
  Report Type: 
  Country: None (occurrence: None)
  Receive Date: 20110221
  Receipt Date: 20110208
  Transmission Date: 20110831
  Serious: No
  Sender: FDA-Public Use
  Company Number: US-BAYER-201034525NA

PATIENT
  Sex: Female
  Weight: 116.1 kg

DRUGS (1)
  1. YAZ [Suspect]
     Indication: CONTRACEPTION
     Dosage: UNK
     Route: 048
     Dates: start: 20100718, end: 20100824

REACTIONS (1)
  - PREGNANCY ON ORAL CONTRACEPTIVE [None]
